FAERS Safety Report 5806791-7 (Version None)
Quarter: 2008Q3

REPORT INFORMATION
  Report Type: 
  Country: None (occurrence: None)
  Receive Date: 20080711
  Receipt Date: 20080701
  Transmission Date: 20090109
  Serious: Yes (Other)
  Sender: FDA-Public Use
  Company Number: PHHY2008BR12993

PATIENT
  Sex: Female

DRUGS (2)
  1. TOFRANIL [Suspect]
     Indication: ANXIETY DISORDER
  2. DRUG THERAPY NOS [Concomitant]
     Indication: SLEEP DISORDER

REACTIONS (1)
  - ARRHYTHMIA [None]
